FAERS Safety Report 6658756-3 (Version None)
Quarter: 2010Q1

REPORT INFORMATION
  Report Type: 
  Country: None (occurrence: None)
  Receive Date: 20100330
  Receipt Date: 20100323
  Transmission Date: 20100710
  Serious: Yes (Other)
  Sender: FDA-Public Use
  Company Number: PHEH2010US03288

PATIENT
  Sex: Female

DRUGS (9)
  1. RECLAST [Suspect]
     Dosage: UNK
     Dates: start: 20100210
  2. CRESTOR [Concomitant]
  3. LASIX [Concomitant]
  4. COREG [Concomitant]
  5. COUMADIN [Concomitant]
  6. ASPIRIN [Concomitant]
  7. CALCIUM [Concomitant]
     Dosage: 600 MG THRICE DAILY
  8. MULTIVITAMIN ^LAPPE^ [Concomitant]
     Dosage: ONCE DAILY
  9. CINNAMON [Concomitant]
     Dosage: 500 MG TWICE DAILY

REACTIONS (7)
  - ARTHRALGIA [None]
  - BACK PAIN [None]
  - IMPLANTABLE DEFIBRILLATOR INSERTION [None]
  - MITRAL VALVE REPLACEMENT [None]
  - MUSCLE SPASMS [None]
  - NERVOUSNESS [None]
  - PRURITUS [None]
